FAERS Safety Report 7358240-8 (Version None)
Quarter: 2011Q1

REPORT INFORMATION
  Report Type: 
  Country: None (occurrence: None)
  Receive Date: 20110317
  Receipt Date: 20110307
  Transmission Date: 20110831
  Serious: Yes (Hospitalization)
  Sender: FDA-Public Use
  Company Number: US-ROCHE-764516

PATIENT
  Sex: Male

DRUGS (2)
  1. XELODA [Suspect]
     Indication: GALLBLADDER CANCER
     Route: 065
  2. GEMCITABINE [Suspect]
     Indication: GALLBLADDER CANCER
     Route: 065

REACTIONS (2)
  - DIASTOLIC DYSFUNCTION [None]
  - CARDIAC FAILURE [None]
